FAERS Safety Report 10184910 (Version 1)
Quarter: 2014Q2

REPORT INFORMATION
  Report Type: Spontaneous
  Country: US (occurrence: None)
  Receive Date: 20140520
  Receipt Date: 20140520
  Transmission Date: 20141212
  Serious: Yes (Other)
  Sender: FDA-Public Use
  Company Number: None

PATIENT
  Age: 71 Year
  Sex: Female
  Weight: 62.14 kg

DRUGS (5)
  1. CIPROFLOXACIN [Suspect]
     Indication: BACTERIAL INFECTION
     Route: 048
     Dates: start: 20140423, end: 20140428
  2. HYDROCHLOROTHIAZIDE [Concomitant]
  3. CALCIUM WITH VITAMIN D [Concomitant]
  4. VITAMIN B12 [Concomitant]
  5. VITAMIN D 50,000 IU [Concomitant]

REACTIONS (7)
  - Dizziness [None]
  - Asthenia [None]
  - Drug ineffective [None]
  - Muscular weakness [None]
  - Myalgia [None]
  - Insomnia [None]
  - Movement disorder [None]
